FAERS Safety Report 14982998 (Version 3)
Quarter: 2018Q2

REPORT INFORMATION
  Report Type: Spontaneous
  Country: JP (occurrence: JP)
  Receive Date: 20180607
  Receipt Date: 20180628
  Transmission Date: 20180711
  Serious: Yes (Hospitalization, Other)
  Sender: FDA-Public Use
  Company Number: JP-GLAXOSMITHKLINE-JP2018JPN093610

PATIENT
  Age: 37 Year
  Sex: Female
  Weight: 63 kg

DRUGS (14)
  1. DEPAKENE-R TABLET [Concomitant]
     Dosage: 400 MG, 1D
  2. RESLIN TABLETS [Concomitant]
     Dosage: 200 MG, 1D
  3. LAMICTAL [Suspect]
     Active Substance: LAMOTRIGINE
     Dosage: 75 MG, 1D(AFTER BREAKFAST 25MG, AFTER DINNER 50MG)
     Route: 048
     Dates: start: 20171204, end: 20180114
  4. LUNESTA TABLETS [Concomitant]
     Dosage: 3 MG, 1D
  5. LAMICTAL [Suspect]
     Active Substance: LAMOTRIGINE
     Dosage: 25 MG, BID
     Route: 048
     Dates: start: 20170808, end: 20170912
  6. LAMICTAL [Suspect]
     Active Substance: LAMOTRIGINE
     Dosage: 50 MG, BID(AFTER BREAKFAST 50MG, AFTER DINNER 50MG)
     Route: 048
     Dates: start: 20180115, end: 20180225
  7. LAMICTAL [Suspect]
     Active Substance: LAMOTRIGINE
     Dosage: 125 MG, 1D(AFTER BREAKFAST 50MG, AFTER DINNER 75MG)
     Route: 048
     Dates: start: 20180226, end: 20180410
  8. LEVOTOMIN [Concomitant]
     Active Substance: LEVOMEPROMAZINE
     Dosage: 20 MG, 1D
  9. LAMICTAL [Suspect]
     Active Substance: LAMOTRIGINE
     Indication: PERSISTENT DEPRESSIVE DISORDER
     Dosage: 25 MG, QOD
     Route: 048
     Dates: start: 20170703, end: 20170724
  10. LAMICTAL [Suspect]
     Active Substance: LAMOTRIGINE
     Dosage: 25 MG, QD
     Route: 048
     Dates: start: 20171030, end: 20171112
  11. LAMICTAL [Suspect]
     Active Substance: LAMOTRIGINE
     Dosage: 25 MG, QD
     Route: 048
     Dates: start: 20170725, end: 20170807
  12. LAMICTAL [Suspect]
     Active Substance: LAMOTRIGINE
     Dosage: 25 MG, QOD
     Route: 048
     Dates: start: 20170925, end: 20171029
  13. LAMICTAL [Suspect]
     Active Substance: LAMOTRIGINE
     Dosage: 25 MG, BID
     Route: 048
     Dates: start: 20171113, end: 20171203
  14. QUETIAPINE. [Concomitant]
     Active Substance: QUETIAPINE
     Dosage: 100 MG, 1D

REACTIONS (8)
  - Hepatomegaly [Unknown]
  - Hepatitis acute [Recovered/Resolved]
  - Dizziness postural [Recovering/Resolving]
  - Malaise [Recovering/Resolving]
  - Hepatic steatosis [Unknown]
  - Sinus tachycardia [Unknown]
  - Eczema [Recovered/Resolved]
  - Dizziness [Recovering/Resolving]

NARRATIVE: CASE EVENT DATE: 20170913
